FAERS Safety Report 5409462-4 (Version None)
Quarter: 2007Q3

REPORT INFORMATION
  Report Type: 
  Country: None (occurrence: None)
  Receive Date: 20070807
  Receipt Date: 20070807
  Transmission Date: 20080115
  Serious: Yes (Life-Threatening)
  Sender: FDA-Public Use
  Company Number: None

PATIENT

DRUGS (2)
  1. ROBITUSON COUGH MEDICINE [Suspect]
  2. ANY OTHER COUGH MEDICINE [Concomitant]

REACTIONS (2)
  - DRUG DEPENDENCE [None]
  - OPIATES POSITIVE [None]
